FAERS Safety Report 8616848-3 (Version None)
Quarter: 2012Q3

REPORT INFORMATION
  Report Type: 
  Country: None (occurrence: None)
  Receive Date: 20120823
  Receipt Date: 20120808
  Transmission Date: 20120928
  Serious: No
  Sender: FDA-Public Use
  Company Number: US-009507513-1208USA004681

PATIENT

DRUGS (2)
  1. NEXPLANON [Suspect]
     Indication: CONTRACEPTION
     Dosage: 1 DF, UNK
     Dates: start: 20120808, end: 20120808
  2. VITAMINS (UNSPECIFIED) [Concomitant]

REACTIONS (2)
  - DEVICE DIFFICULT TO USE [None]
  - INJECTION SITE HAEMORRHAGE [None]
